FAERS Safety Report 14166051 (Version 3)
Quarter: 2018Q4

REPORT INFORMATION
  Report Type: Spontaneous
  Country: FR (occurrence: FR)
  Receive Date: 20171107
  Receipt Date: 20181018
  Transmission Date: 20190204
  Serious: Yes (Other)
  Sender: FDA-Public Use
  Company Number: FR-009507513-1710FRA016234

PATIENT
  Sex: Female

DRUGS (1)
  1. NEXPLANON [Suspect]
     Active Substance: ETONOGESTREL
     Indication: CONTRACEPTIVE IMPLANT
     Dosage: 1 IMPLANT, IN THE LEFT ARM
     Route: 059
     Dates: start: 20140916

REACTIONS (8)
  - Device dislocation [Not Recovered/Not Resolved]
  - Amenorrhoea [Unknown]
  - Incorrect product administration duration [Unknown]
  - Anxiety [Unknown]
  - Complication of device removal [Not Recovered/Not Resolved]
  - Device embolisation [Not Recovered/Not Resolved]
  - Flank pain [Unknown]
  - Complication associated with device [Not Recovered/Not Resolved]

NARRATIVE: CASE EVENT DATE: 20140916
